FAERS Safety Report 16671397 (Version 2)
Quarter: 2019Q3

REPORT INFORMATION
  Report Type: Other
  Country: FR (occurrence: FR)
  Receive Date: 20190806
  Receipt Date: 20190813
  Transmission Date: 20191004
  Serious: Yes (Other)
  Sender: FDA-Public Use
  Company Number: FR-VISTAPHARM, INC.-VER201907-000695

PATIENT
  Age: 4 Month
  Sex: Male
  Weight: 7.82 kg

DRUGS (2)
  1. HYDROCODONE AND ACETAMINOPHEN [Suspect]
     Active Substance: ACETAMINOPHEN\HYDROCODONE
     Dosage: 2ND TIME AGAIN 15 MG/KG
  2. HYDROCODONE AND ACETAMINOPHEN [Suspect]
     Active Substance: ACETAMINOPHEN\HYDROCODONE
     Indication: PYREXIA
     Dosage: 15 MG/KG

REACTIONS (1)
  - Hypothermia [Recovered/Resolved]
